FAERS Safety Report 9096294 (Version 1)
Quarter: 2013Q1

REPORT INFORMATION
  Report Type: Spontaneous
  Country: US (occurrence: US)
  Receive Date: 20130207
  Receipt Date: 20130207
  Transmission Date: 20140127
  Serious: Yes (Hospitalization)
  Sender: FDA-Public Use
  Company Number: US-BAYER-2013-014264

PATIENT
  Age: 27 Year
  Sex: Female

DRUGS (24)
  1. YAZ [Suspect]
  2. YASMIN [Suspect]
  3. KLONOPIN [Concomitant]
     Indication: HYPERTENSION
  4. MIDRIN [Concomitant]
  5. ZOLOFT [Concomitant]
  6. OXYCODONE/APAP [Concomitant]
  7. LAMICTAL [Concomitant]
  8. CYANOCOBALAMIN [Concomitant]
  9. CHLORDIAZEPOXIDE W/CLIDINIUM [Concomitant]
  10. BUTALBITAL, ACETAMINOPHEN + CAFFEINE [Concomitant]
  11. PROMETHAZINE [PROMETHAZINE] [Concomitant]
  12. FENTANYL [Concomitant]
  13. EPIPEN [Concomitant]
  14. HYDROCODONE W/ACETAMINOPHEN [Concomitant]
  15. METHOCARBAMOL [METHOCARBAMOL] [Concomitant]
  16. CLONAZEPAM [Concomitant]
  17. HYDROXYZINE [Concomitant]
  18. DIVALPROEX SODIUM [Concomitant]
  19. PROCHLORPERAZINE [Concomitant]
  20. CEPHADYN [Concomitant]
  21. CYCLOBENZAPRINE [Concomitant]
  22. ALPRAZOLAM [Concomitant]
  23. ALPRAZOLAM [Concomitant]
  24. NITROFURANTOIN [Concomitant]

REACTIONS (1)
  - Pulmonary embolism [Recovered/Resolved]
